FAERS Safety Report 24730983 (Version 1)
Quarter: 2024Q4

REPORT INFORMATION
  Report Type: Spontaneous
  Country: IT (occurrence: IT)
  Receive Date: 20241213
  Receipt Date: 20241213
  Transmission Date: 20250114
  Serious: Yes (Other)
  Sender: CLINIGEN
  Company Number: None

PATIENT

DRUGS (2)
  1. FOSCAVIR [Suspect]
     Active Substance: FOSCARNET SODIUM
     Indication: Cytomegalovirus infection
     Dosage: 6.000 X 2/DIE4.000 X 2/DIE
     Route: 042
     Dates: start: 20241101
  2. AMBISOME [Suspect]
     Active Substance: AMPHOTERICIN B
     Indication: Aspergillus infection
     Dosage: 200 MG/DIE
     Route: 042
     Dates: start: 20241101

REACTIONS (2)
  - Renal failure [Not Recovered/Not Resolved]
  - Hypokalaemia [Not Recovered/Not Resolved]

NARRATIVE: CASE EVENT DATE: 20241105
